FAERS Safety Report 8520084-9 (Version None)
Quarter: 2012Q3

REPORT INFORMATION
  Report Type: 
  Country: None (occurrence: None)
  Receive Date: 20120719
  Receipt Date: 20120705
  Transmission Date: 20120928
  Serious: No
  Sender: FDA-Public Use
  Company Number: US-009507513-1207USA003111

PATIENT

DRUGS (6)
  1. ACETAMINOPHEN/HYDROCODONE BITARTRATE [Concomitant]
     Dosage: 10-500 MG,UNK
  2. AMBIEN [Concomitant]
     Dosage: 5 MG, UNK
  3. CEPHALEXIN [Concomitant]
     Dosage: 250 MG, UNK
  4. RIBAVIRIN [Concomitant]
     Dosage: UNK UNK, QD
  5. INCIVEK [Concomitant]
     Dosage: 375 MG, UNK
  6. PEG-INTRON [Suspect]
     Dosage: 0.4 ML, QW
     Route: 058

REACTIONS (3)
  - FATIGUE [None]
  - HEADACHE [None]
  - AFFECT LABILITY [None]
